FAERS Safety Report 21588961 (Version 2)
Quarter: 2022Q4

REPORT INFORMATION
  Report Type: Spontaneous
  Country: RO (occurrence: RO)
  Receive Date: 20221114
  Receipt Date: 20221205
  Transmission Date: 20230112
  Serious: Yes (Hospitalization)
  Sender: FDA-Public Use
  Company Number: RO-SA-SAC20221111001070

PATIENT
  Sex: Male

DRUGS (1)
  1. DUPIXENT [Suspect]
     Active Substance: DUPILUMAB
     Dosage: UNK
     Dates: start: 202209

REACTIONS (4)
  - Gait disturbance [Unknown]
  - Skin fissures [Unknown]
  - Pain [Unknown]
  - Skin exfoliation [Unknown]
